FAERS Safety Report 16259321 (Version 1)
Quarter: 2019Q2

REPORT INFORMATION
  Report Type: Spontaneous
  Country: SE (occurrence: SE)
  Receive Date: 20190501
  Receipt Date: 20190501
  Transmission Date: 20190711
  Serious: Yes (Hospitalization)
  Sender: FDA-Public Use
  Company Number: SE-TEVA-2019-SE-1043381

PATIENT
  Age: 64 Year
  Sex: Male

DRUGS (4)
  1. ESCITALOPRAM [Suspect]
     Active Substance: ESCITALOPRAM OXALATE
     Indication: DEPRESSION
     Dosage: TITRATED 10 MG TO 12.5 MG DURING THE THERAPY PERIOD.
     Route: 048
     Dates: start: 20181015, end: 20181112
  2. MIRTAZAPIN [Concomitant]
     Active Substance: MIRTAZAPINE
  3. ALFUZOSIN [Concomitant]
     Active Substance: ALFUZOSIN
  4. ESCITALOPRAM [Suspect]
     Active Substance: ESCITALOPRAM OXALATE
     Dosage: 15 MILLIGRAM DAILY;
     Route: 048
     Dates: start: 20181113, end: 20190201

REACTIONS (2)
  - Epilepsy [Recovered/Resolved]
  - Syncope [Recovered/Resolved]

NARRATIVE: CASE EVENT DATE: 20190122
